FAERS Safety Report 14907923 (Version 1)
Quarter: 2018Q2

REPORT INFORMATION
  Report Type: Spontaneous
  Country: US (occurrence: US)
  Receive Date: 20180429
  Receipt Date: 20180429
  Transmission Date: 20180711
  Serious: Yes (Disabling)
  Sender: FDA-Public Use
  Company Number: None

PATIENT
  Age: 31 Year
  Sex: Female
  Weight: 73.03 kg

DRUGS (1)
  1. MIRENA [Suspect]
     Active Substance: LEVONORGESTREL
     Dates: start: 20140326, end: 20180420

REACTIONS (11)
  - Patient-device incompatibility [None]
  - Tinnitus [None]
  - Hormone level abnormal [None]
  - Head discomfort [None]
  - Anxiety [None]
  - Eye disorder [None]
  - Headache [None]
  - Nausea [None]
  - Depression [None]
  - Embedded device [None]
  - Dyspareunia [None]

NARRATIVE: CASE EVENT DATE: 20180420
